FAERS Safety Report 17846238 (Version 1)
Quarter: 2020Q2

REPORT INFORMATION
  Report Type: Spontaneous
  Country: US (occurrence: US)
  Receive Date: 20200601
  Receipt Date: 20200601
  Transmission Date: 20200714
  Serious: Yes (Other)
  Sender: FDA-Public Use
  Company Number: US-PFIZER INC-2020209428

PATIENT
  Age: 13 Year
  Sex: Male

DRUGS (2)
  1. GENOTROPIN [Suspect]
     Active Substance: SOMATROPIN
     Indication: BLOOD GROWTH HORMONE ABNORMAL
  2. GENOTROPIN [Suspect]
     Active Substance: SOMATROPIN
     Indication: FAILURE TO THRIVE
     Dosage: UNK (0.8 MG OR 1.2MG)
     Dates: start: 2016

REACTIONS (1)
  - Multiple fractures [Unknown]

NARRATIVE: CASE EVENT DATE: 2018
